FAERS Safety Report 6132010-0 (Version None)
Quarter: 2009Q1

REPORT INFORMATION
  Report Type: 
  Country: None (occurrence: None)
  Receive Date: 20090325
  Receipt Date: 20090319
  Transmission Date: 20090719
  Serious: Yes (Hospitalization)
  Sender: FDA-Public Use
  Company Number: PHHO2008CA06785

PATIENT
  Sex: Female

DRUGS (3)
  1. CYCLOSPORINE [Suspect]
  2. ERL 080A ERL+TAB [Suspect]
     Indication: RENAL TRANSPLANT
     Dosage: 2 DF, BID
     Route: 048
     Dates: start: 20080410
  3. AVALIDE [Suspect]

REACTIONS (6)
  - BLOOD CREATININE INCREASED [None]
  - DRUG INEFFECTIVE [None]
  - HYPOVOLAEMIA [None]
  - KIDNEY TRANSPLANT REJECTION [None]
  - NEPHROPATHY TOXIC [None]
  - RENAL IMPAIRMENT [None]
